FAERS Safety Report 7419251-7 (Version None)
Quarter: 2011Q2

REPORT INFORMATION
  Report Type: 
  Country: None (occurrence: None)
  Receive Date: 20110415
  Receipt Date: 20110406
  Transmission Date: 20111010
  Serious: Yes (Hospitalization, Other)
  Sender: FDA-Public Use
  Company Number: JP-ASTRAZENECA-2011SE20147

PATIENT
  Age: 82 Year
  Sex: Female

DRUGS (3)
  1. AMLODIN [Concomitant]
     Indication: HYPERTENSION
     Route: 048
  2. CRESTOR [Suspect]
     Indication: DYSLIPIDAEMIA
     Route: 048
     Dates: start: 20100901, end: 20110126
  3. URSO 250 [Concomitant]
     Indication: CHOLELITHIASIS
     Route: 048

REACTIONS (5)
  - WHITE BLOOD CELL COUNT INCREASED [None]
  - VOMITING [None]
  - ALTERED STATE OF CONSCIOUSNESS [None]
  - PYREXIA [None]
  - BLOOD CREATINE PHOSPHOKINASE INCREASED [None]
